FAERS Safety Report 9675244 (Version 1)
Quarter: 2013Q4

REPORT INFORMATION
  Report Type: Spontaneous
  Country: US (occurrence: US)
  Receive Date: 20131107
  Receipt Date: 20131107
  Transmission Date: 20140711
  Serious: No
  Sender: FDA-Public Use
  Company Number: US-PFIZER INC-2013313847

PATIENT
  Sex: Female

DRUGS (2)
  1. PREMARIN [Suspect]
     Dosage: UNK, 2X/WEEK
     Route: 067
  2. PREMARIN [Suspect]
     Dosage: UNK, WEEKLY
     Route: 067

REACTIONS (7)
  - Product quality issue [Unknown]
  - Nervousness [Unknown]
  - Insomnia [Unknown]
  - Pyrexia [Unknown]
  - Chills [Unknown]
  - Vulvovaginal erythema [Unknown]
  - Intentional drug misuse [Unknown]
